FAERS Safety Report 25973765 (Version 1)
Quarter: 2025Q4

REPORT INFORMATION
  Report Type: Spontaneous
  Country: US (occurrence: US)
  Receive Date: 20251029
  Receipt Date: 20251029
  Transmission Date: 20260118
  Serious: Yes (Hospitalization)
  Sender: ROCHE
  Company Number: US-ROCHE-10000417677

PATIENT
  Sex: Male

DRUGS (10)
  1. HEMLIBRA [Suspect]
     Active Substance: EMICIZUMAB-KXWH
     Indication: Factor VIII deficiency
     Dosage: STRENGTH : 150 MG/ML
     Route: 058
     Dates: start: 20241108
  2. ACETAMINOPHEN [Concomitant]
     Active Substance: ACETAMINOPHEN
  3. CALCIUM 500 TAB-D [Concomitant]
  4. CARVEDILOL [Concomitant]
     Active Substance: CARVEDILOL
  5. DIAZEPAM [Concomitant]
     Active Substance: DIAZEPAM
  6. ERIVEDGE [Concomitant]
     Active Substance: VISMODEGIB
  7. FENTANYL [Concomitant]
     Active Substance: FENTANYL
  8. Hemlibra INJ [Concomitant]
     Dosage: STRENGTH : 30 MG/ ML
  9. LIBTAYO [Concomitant]
     Active Substance: CEMIPLIMAB-RWLC
     Dosage: STRENGTH : 350/7 ML
  10. LOSARTAN POTASSIUM [Concomitant]
     Active Substance: LOSARTAN POTASSIUM

REACTIONS (1)
  - Cancer pain [Unknown]
